FAERS Safety Report 8578968-1 (Version None)
Quarter: 2012Q3

REPORT INFORMATION
  Report Type: 
  Country: None (occurrence: None)
  Receive Date: 20120808
  Receipt Date: 20120806
  Transmission Date: 20120928
  Serious: Yes (Hospitalization)
  Sender: FDA-Public Use
  Company Number: AR-PFIZER INC-2012190938

PATIENT
  Sex: Female

DRUGS (2)
  1. IBUPROFEN [Suspect]
     Indication: MUSCULOSKELETAL PAIN
  2. DEXA-RHINASPRAY [Concomitant]
     Indication: NASOPHARYNGITIS
     Dosage: UNK

REACTIONS (1)
  - HYPONATRAEMIA [None]
